FAERS Safety Report 9150617 (Version 1)
Quarter: 2013Q1

REPORT INFORMATION
  Report Type: Spontaneous
  Country: US (occurrence: None)
  Receive Date: 20130131
  Receipt Date: 20130131
  Transmission Date: 20140127
  Serious: Yes (Other)
  Sender: FDA-Public Use
  Company Number: IPC201301-000007

PATIENT
  Age: 69 Year
  Sex: Male

DRUGS (1)
  1. FUROSEMIDE [Suspect]

REACTIONS (3)
  - Acrodermatitis enteropathica [None]
  - Zinc deficiency [None]
  - Diarrhoea [None]
